FAERS Safety Report 16964497 (Version 4)
Quarter: 2019Q4

REPORT INFORMATION
  Report Type: Report from Study
  Country: None (occurrence: GB)
  Receive Date: 20191028
  Receipt Date: 20191204
  Transmission Date: 20200122
  Serious: Yes (Hospitalization)
  Sender: FDA-Public Use
  Company Number: GB-ABBVIE-19K-167-2966722-00

PATIENT
  Sex: Female

DRUGS (3)
  1. DUODOPA [Suspect]
     Active Substance: CARBIDOPA\LEVODOPA
     Indication: PARKINSON^S DISEASE
     Dosage: 5MG/1ML?20MG/1ML?100ML CASSETTE, ?SECOND DAY OF TITRATION VIA PEGJ TUBE
     Route: 050
  2. DUODOPA [Suspect]
     Active Substance: CARBIDOPA\LEVODOPA
     Dosage: CONTINUOUS RATE: 2.1
     Route: 050
  3. DUODOPA [Suspect]
     Active Substance: CARBIDOPA\LEVODOPA
     Dosage: CONTINUOUS RATE: 2.2
     Route: 050

REACTIONS (14)
  - Anal incontinence [Unknown]
  - Constipation [Unknown]
  - Hyperhidrosis [Unknown]
  - Dyskinesia [Not Recovered/Not Resolved]
  - Tremor [Unknown]
  - Anxiety [Unknown]
  - Stoma site pain [Recovering/Resolving]
  - Stoma site discharge [Recovering/Resolving]
  - Cognitive disorder [Unknown]
  - Stoma site infection [Recovering/Resolving]
  - On and off phenomenon [Not Recovered/Not Resolved]
  - Malaise [Unknown]
  - Insomnia [Unknown]
  - Stress [Not Recovered/Not Resolved]

NARRATIVE: CASE EVENT DATE: 2019
